FAERS Safety Report 15118913 (Version 2)
Quarter: 2018Q3

REPORT INFORMATION
  Report Type: Spontaneous
  Country: FR (occurrence: FR)
  Receive Date: 20180709
  Receipt Date: 20180906
  Transmission Date: 20181010
  Serious: Yes (Hospitalization)
  Sender: FDA-Public Use
  Company Number: FR-CONCORDIA PHARMACEUTICALS INC.-E2B_00013320

PATIENT
  Age: 86 Year
  Sex: Male
  Weight: 55.1 kg

DRUGS (14)
  1. SYMBICORT [Suspect]
     Active Substance: BUDESONIDE\FORMOTEROL FUMARATE DIHYDRATE
     Indication: CHRONIC OBSTRUCTIVE PULMONARY DISEASE
     Route: 055
     Dates: end: 20180607
  2. RAMIPRIL. [Suspect]
     Active Substance: RAMIPRIL
     Indication: HYPERTENSION
     Route: 048
     Dates: end: 20180607
  3. DOLIPRANE [Concomitant]
     Active Substance: ACETAMINOPHEN
  4. BISOCE [Concomitant]
     Active Substance: BISOPROLOL
  5. PAROXETINE (CHLORHYDRATE DE) ANHYDRE [Suspect]
     Active Substance: PAROXETINE
     Indication: ANXIETY
     Route: 048
     Dates: start: 20180420, end: 20180607
  6. KARDEGIC [Concomitant]
     Active Substance: ASPIRIN DL-LYSINE
  7. TAHOR [Concomitant]
     Active Substance: ATORVASTATIN CALCIUM
  8. ACIDE FOLIQUE [Suspect]
     Active Substance: FOLIC ACID
     Indication: ANAEMIA
     Route: 048
     Dates: end: 20180607
  9. MIDAZOLAM [Suspect]
     Active Substance: MIDAZOLAM HYDROCHLORIDE
     Indication: AGITATION
     Route: 048
     Dates: start: 20180530, end: 20180607
  10. FUMAFER [Concomitant]
     Active Substance: FERROUS FUMARATE
  11. LERCAN [Concomitant]
     Active Substance: LERCANIDIPINE
  12. PREDNISOLONE. [Suspect]
     Active Substance: PREDNISOLONE
     Indication: PRODUCT USED FOR UNKNOWN INDICATION
     Route: 048
     Dates: end: 20180607
  13. UROREC [Suspect]
     Active Substance: SILODOSIN
     Indication: BENIGN PROSTATIC HYPERPLASIA
     Route: 048
     Dates: end: 20180607
  14. PANTOPRAZOLE [Suspect]
     Active Substance: PANTOPRAZOLE
     Indication: PEPTIC ULCER
     Route: 048
     Dates: end: 20180607

REACTIONS (3)
  - Confusional state [Recovered/Resolved]
  - Somnolence [Recovered/Resolved]
  - Hyponatraemia [Recovered/Resolved]

NARRATIVE: CASE EVENT DATE: 20180607
